FAERS Safety Report 6470882-0 (Version None)
Quarter: 2009Q4

REPORT INFORMATION
  Report Type: 
  Country: None (occurrence: None)
  Receive Date: 20091203
  Receipt Date: 20080110
  Transmission Date: 20100525
  Serious: No
  Sender: FDA-Public Use
  Company Number: US-ELI_LILLY_AND_COMPANY-US200801002026

PATIENT
  Age: 38 Year
  Sex: Male

DRUGS (7)
  1. CYMBALTA [Suspect]
     Indication: BACK PAIN
     Dosage: 120 MG, UNK
     Route: 048
  2. LOTREL [Concomitant]
  3. TEMAZEPAM [Concomitant]
  4. XANAX [Concomitant]
  5. ALCOHOL [Concomitant]
  6. BC POWDER [Concomitant]
  7. ANALGESICS [Concomitant]

REACTIONS (4)
  - ALANINE AMINOTRANSFERASE INCREASED [None]
  - ASPARTATE AMINOTRANSFERASE INCREASED [None]
  - BLOOD ALKALINE PHOSPHATASE INCREASED [None]
  - JAUNDICE [None]
